FAERS Safety Report 7735206-7 (Version None)
Quarter: 2011Q3

REPORT INFORMATION
  Report Type: 
  Country: None (occurrence: None)
  Receive Date: 20110907
  Receipt Date: 20110902
  Transmission Date: 20111222
  Serious: Yes (Other)
  Sender: FDA-Public Use
  Company Number: CHPA2011US11781

PATIENT
  Age: 58 Year
  Sex: Female

DRUGS (1)
  1. TRANSDERM SCOP [Suspect]
     Indication: MOTION SICKNESS
     Dosage: 1 DF, Q72H
     Route: 062
     Dates: start: 20101201

REACTIONS (5)
  - DRUG WITHDRAWAL SYNDROME [None]
  - VERTIGO [None]
  - DIZZINESS [None]
  - APPLICATION SITE RASH [None]
  - DRUG DEPENDENCE [None]
